FAERS Safety Report 5201584-6 (Version None)
Quarter: 2007Q1

REPORT INFORMATION
  Report Type: 
  Country: None (occurrence: None)
  Receive Date: 20070108
  Receipt Date: 20061227
  Transmission Date: 20070707
  Serious: Yes (Death, Hospitalization)
  Sender: FDA-Public Use
  Company Number: US-PFIZER INC-2007000659

PATIENT
  Sex: Male
  Weight: 113.4 kg

DRUGS (1)
  1. CELEBREX [Suspect]
     Dates: start: 20040909, end: 20040912

REACTIONS (1)
  - CARDIAC ARREST [None]
